FAERS Safety Report 9039237 (Version 1)
Quarter: 2013Q1

REPORT INFORMATION
  Report Type: Spontaneous
  Country: US (occurrence: None)
  Receive Date: 20130123
  Receipt Date: 20130123
  Transmission Date: 20140127
  Serious: Yes (Life-Threatening, Hospitalization)
  Sender: FDA-Public Use
  Company Number: None

PATIENT
  Age: 53 Year
  Sex: Female
  Weight: 72.58 kg

DRUGS (1)
  1. LATUDA 40MG [Suspect]
     Indication: BIPOLAR DISORDER
     Route: 048
     Dates: start: 20120810, end: 20130117

REACTIONS (4)
  - Swelling face [None]
  - Pain in jaw [None]
  - Gingival abscess [None]
  - Swollen tongue [None]
